FAERS Safety Report 8372764-6 (Version None)
Quarter: 2012Q2

REPORT INFORMATION
  Report Type: 
  Country: None (occurrence: None)
  Receive Date: 20120521
  Receipt Date: 20120516
  Transmission Date: 20120825
  Serious: Yes (Hospitalization, Other)
  Sender: FDA-Public Use
  Company Number: AT-PFIZER INC-2012118503

PATIENT
  Age: 71 Year
  Sex: Female
  Weight: 72 kg

DRUGS (3)
  1. PLAVIX [Suspect]
     Indication: CORONARY ARTERY DISEASE
     Dosage: 75 MG, UNK
     Route: 048
     Dates: start: 20120206, end: 20120308
  2. ATORVASTATIN CALCIUM [Suspect]
     Indication: CORONARY ARTERY DISEASE
     Dosage: 80 MG, UNK
     Route: 048
     Dates: start: 20120206, end: 20120310
  3. ATORVASTATIN CALCIUM [Suspect]
     Dosage: UNK
     Dates: start: 20120101, end: 20120508

REACTIONS (3)
  - DRUG-INDUCED LIVER INJURY [None]
  - SEPSIS [None]
  - TRANSAMINASES INCREASED [None]
